FAERS Safety Report 17252988 (Version 1)
Quarter: 2020Q1

REPORT INFORMATION
  Report Type: Spontaneous
  Country: US (occurrence: US)
  Receive Date: 20200109
  Receipt Date: 20200109
  Transmission Date: 20200409
  Serious: No
  Sender: FDA-Public Use
  Company Number: US-ABBVIE-19S-163-2802568-00

PATIENT
  Age: 67 Year
  Sex: Female

DRUGS (1)
  1. DUOPA [Suspect]
     Active Substance: CARBIDOPA\LEVODOPA
     Indication: PRODUCT USED FOR UNKNOWN INDICATION
     Route: 050
     Dates: start: 201904

REACTIONS (3)
  - Vomiting [Recovered/Resolved]
  - Device dislocation [Unknown]
  - Stoma site infection [Unknown]

NARRATIVE: CASE EVENT DATE: 20190404
